FAERS Safety Report 9885864 (Version 2)
Quarter: 2014Q1

REPORT INFORMATION
  Report Type: Spontaneous
  Country: US (occurrence: US)
  Receive Date: 20140210
  Receipt Date: 20140210
  Transmission Date: 20141002
  Serious: Yes (Death, Hospitalization)
  Sender: FDA-Public Use
  Company Number: US-GLAXOSMITHKLINE-A0789180A

PATIENT
  Age: 65 Year
  Sex: Male

DRUGS (1)
  1. AVANDIA [Suspect]
     Indication: DIABETES MELLITUS
     Dosage: 4MG IN THE MORNING
     Route: 048
     Dates: start: 2006, end: 20070511

REACTIONS (3)
  - Cardio-respiratory arrest [Fatal]
  - Myocardial infarction [Fatal]
  - Heart injury [Unknown]
